FAERS Safety Report 23795298 (Version 1)
Quarter: 2024Q2

REPORT INFORMATION
  Report Type: Spontaneous
  Country: SE (occurrence: SE)
  Receive Date: 20240429
  Receipt Date: 20240429
  Transmission Date: 20240716
  Serious: Yes (Other)
  Sender: FDA-Public Use
  Company Number: SE-TEVA-VS-3187816

PATIENT

DRUGS (1)
  1. TESTOSTERONE [Suspect]
     Active Substance: TESTOSTERONE
     Indication: Product used for unknown indication
     Dosage: 1000MG/4 ML ART NR 066903
     Route: 065

REACTIONS (3)
  - Anaphylactic shock [Unknown]
  - Cough [Unknown]
  - Product substitution issue [Unknown]
